FAERS Safety Report 6320499-3 (Version None)
Quarter: 2009Q3

REPORT INFORMATION
  Report Type: 
  Country: None (occurrence: None)
  Receive Date: 20090822
  Receipt Date: 20081121
  Transmission Date: 20100115
  Serious: No
  Sender: FDA-Public Use
  Company Number: US-ABBOTT-08P-163-0487872-00

PATIENT
  Sex: Female
  Weight: 99.88 kg

DRUGS (3)
  1. NIASPAN [Suspect]
     Indication: BLOOD CHOLESTEROL
     Dates: start: 20081001, end: 20081109
  2. NIASPAN [Suspect]
     Indication: BLOOD TRIGLYCERIDES
  3. ASPIRIN [Concomitant]
     Indication: DRUG USE FOR UNKNOWN INDICATION

REACTIONS (6)
  - DYSPNOEA [None]
  - FATIGUE [None]
  - FEELING ABNORMAL [None]
  - GENERALISED ERYTHEMA [None]
  - LIP SWELLING [None]
  - PARAESTHESIA [None]
